FAERS Safety Report 4950250-0 (Version None)
Quarter: 2006Q1

REPORT INFORMATION
  Report Type: 
  Country: None (occurrence: None)
  Receive Date: 20060315
  Receipt Date: 20060302
  Transmission Date: 20060701
  Serious: Yes (Hospitalization)
  Sender: FDA-Public Use
  Company Number: 2006033256

PATIENT
  Age: 80 Year
  Sex: Female

DRUGS (6)
  1. HALCION [Suspect]
     Indication: INSOMNIA
     Dosage: 0.25 MG, ORAL
     Route: 048
     Dates: start: 20050801, end: 20060218
  2. METOCLOPRAMIDE [Suspect]
     Indication: GASTRITIS
     Dosage: 15 MG, ORAL
     Route: 048
     Dates: start: 20050801, end: 20060218
  3. OLMESARTAN (OLMESARTAN) [Suspect]
     Indication: HYPERTENSION
     Dosage: 20 MG, ORAL
     Route: 048
     Dates: start: 20050801, end: 20060218
  4. OMEPRAZOLE [Suspect]
     Indication: REFLUX OESOPHAGITIS
     Dosage: 10 MG, ORAL
     Route: 048
     Dates: start: 20050801, end: 20060218
  5. EFONIDIPINE HYDROCHLORIDE (EFONIDIPINE HYDROCHLORIDE) [Suspect]
     Indication: HYPERTENSION
     Dosage: 10 MG, ORAL
     Route: 048
     Dates: start: 20050801, end: 20060218
  6. SPIRONOLACTONE [Concomitant]

REACTIONS (4)
  - BLOOD CREATINE PHOSPHOKINASE INCREASED [None]
  - BLOOD CREATININE INCREASED [None]
  - FATIGUE [None]
  - INFLUENZA [None]
